FAERS Safety Report 12602722 (Version 1)
Quarter: 2016Q3

REPORT INFORMATION
  Report Type: Spontaneous
  Country: CH (occurrence: CH)
  Receive Date: 20160728
  Receipt Date: 20160728
  Transmission Date: 20161109
  Serious: Yes (Hospitalization)
  Sender: FDA-Public Use
  Company Number: CH-TEVA-678850ISR

PATIENT
  Age: 90 Year
  Sex: Female

DRUGS (3)
  1. LEVEMIR PENFILL [Suspect]
     Active Substance: INSULIN DETEMIR
     Dosage: 30 IU (INTERNATIONAL UNIT) DAILY; STRENGTH 100 IU, LONG-TERM USE, START DATE UNKNOWN
     Route: 058
     Dates: end: 201604
  2. METFORMIN-MEPHA 500 LACTAB [Suspect]
     Active Substance: METFORMIN HYDROCHLORIDE
     Dosage: 850 MILLIGRAM DAILY; LONG-TERM USE
     Route: 048
  3. DAONIL TABLETTEN [Suspect]
     Active Substance: GLYBURIDE
     Dosage: 15 MILLIGRAM DAILY; STRENGTH 5 MG, LONG-TERM USE, START DATE UNKNOWN
     Route: 048
     Dates: end: 201604

REACTIONS (2)
  - Altered state of consciousness [Recovered/Resolved]
  - Hypoglycaemia [Recovered/Resolved]

NARRATIVE: CASE EVENT DATE: 20160408
